FAERS Safety Report 5799532-3 (Version None)
Quarter: 2008Q3

REPORT INFORMATION
  Report Type: 
  Country: None (occurrence: None)
  Receive Date: 20080703
  Receipt Date: 20080620
  Transmission Date: 20090109
  Serious: Yes (Other)
  Sender: FDA-Public Use
  Company Number: US-ELI_LILLY_AND_COMPANY-US200806004873

PATIENT
  Sex: Female

DRUGS (10)
  1. CYMBALTA [Suspect]
     Indication: MULTIPLE SCLEROSIS
     Dosage: 60 MG, 2/D
     Dates: start: 20070223
  2. TOPIMAX [Concomitant]
  3. VISTARIL [Concomitant]
  4. VANCOR [Concomitant]
  5. ASPIRIN [Concomitant]
  6. LORTAB [Concomitant]
  7. PRED FORTE [Concomitant]
  8. ISTALOL [Concomitant]
  9. COPAXONE [Concomitant]
  10. CHEMOTHERAPEUTICS NOS [Concomitant]

REACTIONS (1)
  - NEOPLASM MALIGNANT [None]
